FAERS Safety Report 5390799-2 (Version None)
Quarter: 2007Q3

REPORT INFORMATION
  Report Type: 
  Country: None (occurrence: None)
  Receive Date: 20070716
  Receipt Date: 20070705
  Transmission Date: 20080115
  Serious: Yes (Other)
  Sender: FDA-Public Use
  Company Number: 2007SP013660

PATIENT
  Age: 59 Year
  Sex: Female

DRUGS (2)
  1. INTERFERON (MANUFACTURER UNKNOWN) (INTERFERON ALAF-2B) [Suspect]
     Indication: HEPATITIS C
     Dosage: SC
     Route: 058
     Dates: start: 20051201, end: 20060801
  2. REBETOL [Suspect]
     Indication: HEPATITIS C
     Dosage: PO
     Route: 048
     Dates: start: 20051201, end: 20060801

REACTIONS (4)
  - BLOOD CREATINE PHOSPHOKINASE INCREASED [None]
  - DERMATOMYOSITIS [None]
  - GENERAL PHYSICAL CONDITION ABNORMAL [None]
  - THERAPEUTIC RESPONSE DECREASED [None]
